FAERS Safety Report 26192280 (Version 1)
Quarter: 2025Q4

REPORT INFORMATION
  Report Type: Spontaneous
  Country: EU (occurrence: EU)
  Receive Date: 20251223
  Receipt Date: 20251223
  Transmission Date: 20260117
  Serious: Yes (Life-Threatening)
  Sender: FRESENIUS KABI
  Company Number: None

PATIENT
  Age: 58 Year
  Sex: Male
  Weight: 83 kg

DRUGS (10)
  1. BORTEZOMIB [Suspect]
     Active Substance: BORTEZOMIB
     Indication: Plasma cell myeloma
     Dosage: 2.44 MG
     Route: 058
     Dates: start: 20211022
  2. LENALIDOMIDE [Suspect]
     Active Substance: LENALIDOMIDE
     Indication: Plasma cell myeloma
     Dosage: 25.0 MG A-CO
     Route: 048
     Dates: start: 20211022
  3. BLENREP [Suspect]
     Active Substance: BELANTAMAB MAFODOTIN-BLMF
     Indication: Plasma cell myeloma
     Dosage: 200.0 MG
     Route: 042
     Dates: start: 20211022
  4. ACICLOVIR VIATRIS 200 MG TABLETS EFG, 25 tablets [Concomitant]
     Indication: Plasma cell myeloma
     Dosage: 400.0 MG EVERY 12 HOURS
     Route: 048
     Dates: start: 20211022
  5. OMEPRAZOL VIATRIS 20 MG GASTRO-RESISTANT HARD CAPSULES, 56 capsules (b [Concomitant]
     Indication: Plasma cell myeloma
     Dosage: 20.0 MG A-DE
     Route: 048
     Dates: start: 20211023
  6. PARACETAMOL MYLAN PHARMACEUTICALS 1 G tablets EFG [Concomitant]
     Indication: Plasma cell myeloma
     Dosage: 1.0 G DECOCE
     Route: 048
     Dates: start: 20211022
  7. A.A.S. 100 mg tablets, 30 tablets [Concomitant]
     Indication: Plasma cell myeloma
     Dosage: 100.0 MG DE
     Route: 048
     Dates: start: 20211023
  8. LORMETAZEPAM STADA 1 mg tablets EFG, 30 tablets [Concomitant]
     Indication: Insomnia
     Dosage: 1.0 MG EVERY 24 HOURS NIGHT
     Route: 048
     Dates: start: 20211129
  9. FML 1 mg/ml eye drops in suspension, 1 dropper bottle of 5 ml [Concomitant]
     Indication: Keratitis
     Dosage: 1.0 DROPS EVERY 6 HOURS?ROA: OCULAR
     Dates: start: 20220111, end: 20220210
  10. MASTICAL 500 mg CHEWABLE TABLETS, 90 tablets [Concomitant]
     Indication: Plasma cell myeloma
     Dosage: 1250.0 MG CE
     Route: 048
     Dates: start: 20220124

REACTIONS (2)
  - Interstitial lung disease [Recovering/Resolving]
  - Thrombosis [Recovering/Resolving]

NARRATIVE: CASE EVENT DATE: 20220131
